FAERS Safety Report 11867341 (Version 1)
Quarter: 2015Q4

REPORT INFORMATION
  Report Type: Spontaneous
  Country: None (occurrence: GB)
  Receive Date: 20151224
  Receipt Date: 20151224
  Transmission Date: 20160305
  Serious: Yes (Hospitalization)
  Sender: FDA-Public Use
  Company Number: GB-MEDAC PHARMA, INC.-1045859

PATIENT
  Age: 52 Year
  Sex: Female

DRUGS (1)
  1. METOJECT PEN [Suspect]
     Active Substance: METHOTREXATE
     Dates: start: 20150414

REACTIONS (2)
  - Diabetic gastroparesis [Not Recovered/Not Resolved]
  - Vomiting [Not Recovered/Not Resolved]

NARRATIVE: CASE EVENT DATE: 201509
